FAERS Safety Report 6265314-1 (Version None)
Quarter: 2009Q3

REPORT INFORMATION
  Report Type: 
  Country: None (occurrence: None)
  Receive Date: 20090708
  Receipt Date: 20090624
  Transmission Date: 20100115
  Serious: Yes (Other)
  Sender: FDA-Public Use
  Company Number: 8048560

PATIENT
  Sex: Male

DRUGS (4)
  1. EQUASYM [Suspect]
     Dosage: 60 MG ONCE PO
     Route: 048
  2. EQUASYM [Suspect]
     Dosage: 20 MG ONCE PO
     Route: 048
  3. EQUASYM [Suspect]
     Dosage: 20 MG ONCE PO
     Route: 048
  4. ALCOHOL [Suspect]

REACTIONS (5)
  - ALCOHOL ABUSE [None]
  - DRUG ABUSE [None]
  - INCORRECT DOSE ADMINISTERED [None]
  - INCORRECT DRUG ADMINISTRATION DURATION [None]
  - WRONG TECHNIQUE IN DRUG USAGE PROCESS [None]
